FAERS Safety Report 7921062-0 (Version None)
Quarter: 2011Q4

REPORT INFORMATION
  Report Type: 
  Country: None (occurrence: None)
  Receive Date: 20111117
  Receipt Date: 20111111
  Transmission Date: 20120403
  Serious: Yes (Hospitalization, Disabling, Other)
  Sender: FDA-Public Use
  Company Number: IT-MERCK-1108USA01132

PATIENT
  Age: 58 Year
  Sex: Female

DRUGS (1)
  1. FOSAMAX [Suspect]
     Indication: OSTEOPENIA
     Route: 048
     Dates: start: 20020502, end: 20050401

REACTIONS (12)
  - BARRETT'S OESOPHAGUS [None]
  - FOOT FRACTURE [None]
  - MENISCUS LESION [None]
  - FRACTURE NONUNION [None]
  - FEMUR FRACTURE [None]
  - FALL [None]
  - GAIT DISTURBANCE [None]
  - EPICONDYLITIS [None]
  - BONE DISORDER [None]
  - FRACTURE MALUNION [None]
  - GASTROOESOPHAGEAL REFLUX DISEASE [None]
  - TRANSFUSION [None]
